FAERS Safety Report 5578752-7 (Version None)
Quarter: 2007Q4

REPORT INFORMATION
  Report Type: 
  Country: None (occurrence: None)
  Receive Date: 20071227
  Receipt Date: 20071215
  Transmission Date: 20080405
  Serious: Yes (Other)
  Sender: FDA-Public Use
  Company Number: CHPA2007US13724

PATIENT
  Age: 37 Year
  Sex: Male
  Weight: 84.8 kg

DRUGS (3)
  1. EXLAX SENNA SMOOTH (SENNOSIDES) (NCH)(SENNA GLYCOSIDES (CA SALTS OF PU [Suspect]
     Indication: FAECES HARD
     Dosage: 45 MG, ONCE/ SINGLE, ORAL
     Route: 048
     Dates: start: 20071214
  2. PROPOXYPHENE (DEXTROPROPOXYPHENE) [Concomitant]
  3. AMITRIPTYLINE HCL [Concomitant]

REACTIONS (2)
  - HAEMATOCHEZIA [None]
  - OVERDOSE [None]
